FAERS Safety Report 16627308 (Version 1)
Quarter: 2019Q3

REPORT INFORMATION
  Report Type: Spontaneous
  Country: CA (occurrence: CA)
  Receive Date: 20190724
  Receipt Date: 20190724
  Transmission Date: 20191004
  Serious: Yes (Other)
  Sender: FDA-Public Use
  Company Number: CA-TEVA-2019-CA-1082347

PATIENT
  Sex: Male

DRUGS (12)
  1. ASA [Suspect]
     Active Substance: ASPIRIN
     Indication: PRODUCT USED FOR UNKNOWN INDICATION
     Route: 065
  2. VITAMIN B12 [Concomitant]
     Active Substance: CYANOCOBALAMIN
  3. DILTIAZEM. [Concomitant]
     Active Substance: DILTIAZEM
  4. INFLIXIMAB [Concomitant]
     Active Substance: INFLIXIMAB
  5. SYMBICORT [Concomitant]
     Active Substance: BUDESONIDE\FORMOTEROL FUMARATE DIHYDRATE
  6. LANSOPRAZOLE. [Concomitant]
     Active Substance: LANSOPRAZOLE
  7. METHOTREXATE. [Concomitant]
     Active Substance: METHOTREXATE
  8. CEFPROZIL. [Suspect]
     Active Substance: CEFPROZIL
     Indication: NASOPHARYNGITIS
     Route: 048
  9. IRBESARTAN. [Concomitant]
     Active Substance: IRBESARTAN
  10. TAMSULOSIN [Concomitant]
     Active Substance: TAMSULOSIN
  11. METRONIDAZOLE. [Suspect]
     Active Substance: METRONIDAZOLE
     Indication: GASTRIC INFECTION
     Route: 048
  12. LEVOTHYROXINE. [Concomitant]
     Active Substance: LEVOTHYROXINE

REACTIONS (3)
  - Drug ineffective [Recovered/Resolved]
  - Gastric infection [Recovered/Resolved]
  - Drug hypersensitivity [Recovered/Resolved]
